FAERS Safety Report 7767775-5 (Version None)
Quarter: 2011Q3

REPORT INFORMATION
  Report Type: 
  Country: None (occurrence: None)
  Receive Date: 20110922
  Receipt Date: 20101221
  Transmission Date: 20111222
  Serious: No
  Sender: FDA-Public Use
  Company Number: US-ASTRAZENECA-2010SE60166

PATIENT
  Age: 45 Year
  Sex: Female

DRUGS (3)
  1. DEPAKOTE [Concomitant]
  2. RESPERIDOL [Concomitant]
  3. SEROQUEL XR [Suspect]
     Route: 048
     Dates: start: 20101220

REACTIONS (6)
  - CONFUSIONAL STATE [None]
  - MIDDLE INSOMNIA [None]
  - ABDOMINAL PAIN UPPER [None]
  - FEELING ABNORMAL [None]
  - MUSCULOSKELETAL STIFFNESS [None]
  - THIRST [None]
